FAERS Safety Report 8084967-9 (Version None)
Quarter: 2012Q1

REPORT INFORMATION
  Report Type: 
  Country: None (occurrence: None)
  Receive Date: 20120128
  Receipt Date: 20110330
  Transmission Date: 20120608
  Serious: No
  Sender: FDA-Public Use
  Company Number: US-ABBOTT-11P-163-0715748-00

PATIENT
  Sex: Female
  Weight: 52.21 kg

DRUGS (17)
  1. SYNTHROID [Concomitant]
     Indication: HYPOTHYROIDISM
  2. FLAXSEED OIL [Concomitant]
     Indication: SUPPLEMENTATION THERAPY
  3. SENOKOT [Concomitant]
     Indication: CONSTIPATION
  4. CLINDAMYCIN [Concomitant]
     Indication: DENTAL DISORDER PROPHYLAXIS
  5. COZARIL [Concomitant]
     Indication: HYPERTENSION
  6. ENTERIC ASA [Concomitant]
     Indication: CARDIAC DISORDER
  7. FISH OIL [Concomitant]
     Indication: SUPPLEMENTATION THERAPY
  8. LASIX [Concomitant]
     Indication: HYPERTENSION
  9. HUMIRA [Suspect]
     Indication: RHEUMATOID ARTHRITIS
     Dates: start: 20110308, end: 20110330
  10. BONIVA [Concomitant]
     Indication: OSTEOPOROSIS
  11. COLACE [Concomitant]
     Indication: CONSTIPATION
  12. PRILOSEC [Concomitant]
     Indication: GASTROOESOPHAGEAL REFLUX DISEASE
  13. LACRILUBE [Concomitant]
     Indication: DRY EYE
     Route: 047
  14. NORVASC [Concomitant]
     Indication: HYPERTENSION
  15. ZOCOR [Concomitant]
     Indication: BLOOD CHOLESTEROL INCREASED
  16. TOPROL-XL [Concomitant]
     Indication: HYPERTENSION
  17. MULTI-VITAMINS [Concomitant]
     Indication: SUPPLEMENTATION THERAPY

REACTIONS (5)
  - GENERALISED ERYTHEMA [None]
  - GAIT DISTURBANCE [None]
  - PRURITUS [None]
  - RASH GENERALISED [None]
  - ARTHRALGIA [None]
